FAERS Safety Report 16984017 (Version 1)
Quarter: 2019Q4

REPORT INFORMATION
  Report Type: Spontaneous
  Country: CA (occurrence: CA)
  Receive Date: 20191101
  Receipt Date: 20191101
  Transmission Date: 20200122
  Serious: Yes (Other)
  Sender: FDA-Public Use
  Company Number: CA-PFIZER INC-2019468263

PATIENT
  Sex: Female

DRUGS (1)
  1. ATIVAN [Suspect]
     Active Substance: LORAZEPAM
     Indication: ANXIETY
     Dosage: 0.5 MG, UNK
     Route: 060

REACTIONS (3)
  - Insomnia [Unknown]
  - Hallucination, auditory [Unknown]
  - Tachycardia [Unknown]
